FAERS Safety Report 19438259 (Version 1)
Quarter: 2021Q2

REPORT INFORMATION
  Report Type: Spontaneous
  Country: FR (occurrence: FR)
  Receive Date: 20210618
  Receipt Date: 20210618
  Transmission Date: 20210717
  Serious: Yes (Other)
  Sender: FDA-Public Use
  Company Number: FR-UCBSA-2019007946

PATIENT
  Age: 8 Year
  Sex: Male

DRUGS (2)
  1. MICROPAKINE [Concomitant]
     Active Substance: VALPROATE SODIUM
     Indication: PRODUCT USED FOR UNKNOWN INDICATION
     Dosage: UNK
  2. KEPPRA [Suspect]
     Active Substance: LEVETIRACETAM
     Indication: PRODUCT USED FOR UNKNOWN INDICATION
     Dosage: 400 ML, 2X/DAY (BID)

REACTIONS (7)
  - Myoclonic epilepsy [Unknown]
  - Dysgraphia [Unknown]
  - Nocturnal fear [Unknown]
  - Memory impairment [Unknown]
  - Repetitive speech [Unknown]
  - Aggression [Unknown]
  - Petit mal epilepsy [Unknown]
